FAERS Safety Report 13382135 (Version 3)
Quarter: 2017Q2

REPORT INFORMATION
  Report Type: Spontaneous
  Country: ES (occurrence: ES)
  Receive Date: 20170329
  Receipt Date: 20170512
  Transmission Date: 20170830
  Serious: Yes (Other)
  Sender: FDA-Public Use
  Company Number: ES-OCTA-GAM07217ES

PATIENT
  Age: 62 Year
  Sex: Male

DRUGS (2)
  1. OCTAGAMOCTA [Suspect]
     Active Substance: HUMAN IMMUNOGLOBULIN G
     Indication: IMMUNE THROMBOCYTOPENIC PURPURA
     Route: 042
     Dates: start: 20160804
  2. ELTROMBOPAG [Concomitant]
     Active Substance: ELTROMBOPAG
     Indication: ATRIAL FIBRILLATION

REACTIONS (4)
  - Hepatitis B core antibody positive [Not Recovered/Not Resolved]
  - Hepatitis B surface antigen negative [Not Recovered/Not Resolved]
  - Hepatitis B surface antibody positive [Not Recovered/Not Resolved]
  - Atrial fibrillation [None]

NARRATIVE: CASE EVENT DATE: 20160906
